FAERS Safety Report 16260096 (Version 1)
Quarter: 2019Q2

REPORT INFORMATION
  Report Type: Spontaneous
  Country: US (occurrence: US)
  Receive Date: 20190430
  Receipt Date: 20190430
  Transmission Date: 20190711
  Serious: Yes (Other)
  Sender: FDA-Public Use
  Company Number: None

PATIENT
  Age: 34 Year
  Sex: Female
  Weight: 49.5 kg

DRUGS (4)
  1. EMGALITY [Suspect]
     Active Substance: GALCANEZUMAB-GNLM
     Indication: HEADACHE
     Dosage: ?          OTHER FREQUENCY:MONTHLY;?
     Route: 058
     Dates: start: 20190422
  2. CLONAZEPAM (1MG 3X/DAY) [Concomitant]
  3. OXYCODONE (10 MG 4X/DAY) [Concomitant]
  4. CLONIDINE (0.2MG 2X/DAY) [Concomitant]

REACTIONS (5)
  - Product use complaint [None]
  - Anger [None]
  - Emotional poverty [None]
  - Depression [None]
  - Apathy [None]

NARRATIVE: CASE EVENT DATE: 20190430
